FAERS Safety Report 6770668-3 (Version None)
Quarter: 2010Q2

REPORT INFORMATION
  Report Type: 
  Country: None (occurrence: None)
  Receive Date: 20100615
  Receipt Date: 20100604
  Transmission Date: 20101027
  Serious: Yes (Hospitalization, Other)
  Sender: FDA-Public Use
  Company Number: US-AMGEN-QUU413744

PATIENT

DRUGS (3)
  1. ENBREL [Suspect]
     Route: 064
     Dates: end: 20100429
  2. PRENATAL VITAMINS [Concomitant]
     Route: 064
     Dates: start: 20091209
  3. VITAMINS, OTHER COMBINATIONS [Concomitant]
     Route: 064
     Dates: start: 20100325

REACTIONS (4)
  - FOETAL GROWTH RETARDATION [None]
  - HYPOTHERMIA NEONATAL [None]
  - IMMATURE RESPIRATORY SYSTEM [None]
  - PREMATURE BABY [None]
